FAERS Safety Report 25921912 (Version 2)
Quarter: 2025Q4

REPORT INFORMATION
  Report Type: Spontaneous
  Country: US (occurrence: US)
  Receive Date: 20251015
  Receipt Date: 20251020
  Transmission Date: 20260118
  Serious: No
  Sender: ABBVIE
  Company Number: US-ABBVIE-6502064

PATIENT
  Age: 60 Year
  Sex: Female
  Weight: 65.7 kg

DRUGS (15)
  1. VYALEV [Suspect]
     Active Substance: FOSCARBIDOPA\FOSLEVODOPA
     Indication: Parkinson^s disease
     Route: 058
     Dates: start: 20250805
  2. PANTOPRAZOLE [Concomitant]
     Active Substance: PANTOPRAZOLE
     Indication: Gastrooesophageal reflux disease
  3. CLONAZEPAM [Concomitant]
     Active Substance: CLONAZEPAM
     Indication: Muscle rigidity
  4. FLAXSEED [Concomitant]
     Active Substance: FLAX SEED
     Indication: Supplementation therapy
  5. PROBIOTICS NOS [Concomitant]
     Active Substance: PROBIOTICS NOS
     Indication: Product used for unknown indication
  6. VITAMIN B12 [Concomitant]
     Active Substance: CYANOCOBALAMIN
     Indication: Vitamin supplementation
  7. IRBESARTAN [Concomitant]
     Active Substance: IRBESARTAN
     Indication: Blood pressure measurement
  8. MAGNESIUM OXIDE [Concomitant]
     Active Substance: MAGNESIUM OXIDE
     Indication: Mineral supplementation
  9. CETIRIZINE [Concomitant]
     Active Substance: CETIRIZINE HYDROCHLORIDE
     Indication: Hypersensitivity
  10. VITAMIN D3 [Concomitant]
     Active Substance: CHOLECALCIFEROL
     Indication: Vitamin supplementation
  11. DULOXETINE [Concomitant]
     Active Substance: DULOXETINE
     Indication: Pain
  12. MELOXICAM [Concomitant]
     Active Substance: MELOXICAM
     Indication: Inflammation
  13. AMLODIPINE [Concomitant]
     Active Substance: AMLODIPINE BESYLATE
     Indication: Hypertension
  14. COLACE [Concomitant]
     Active Substance: DOCUSATE SODIUM
     Indication: Constipation
  15. MELATONIN [Concomitant]
     Active Substance: MELATONIN
     Indication: Sleep disorder

REACTIONS (13)
  - Eye infection [Recovering/Resolving]
  - Catheter site irritation [Unknown]
  - Catheter site discomfort [Unknown]
  - Medical device discomfort [Not Recovered/Not Resolved]
  - Mobility decreased [Unknown]
  - Catheter site haematoma [Unknown]
  - Device material issue [Not Recovered/Not Resolved]
  - Device issue [Not Recovered/Not Resolved]
  - Catheter site pain [Unknown]
  - Catheter site bruise [Unknown]
  - Device issue [Not Recovered/Not Resolved]
  - Muscle strain [Not Recovered/Not Resolved]
  - Device use issue [Unknown]

NARRATIVE: CASE EVENT DATE: 20250101
